FAERS Safety Report 8462468-3 (Version None)
Quarter: 2012Q2

REPORT INFORMATION
  Report Type: 
  Country: None (occurrence: None)
  Receive Date: 20120625
  Receipt Date: 20120613
  Transmission Date: 20120825
  Serious: Yes (Other)
  Sender: FDA-Public Use
  Company Number: MX-ELI_LILLY_AND_COMPANY-MX201206005094

PATIENT
  Age: 34 Year
  Sex: Female

DRUGS (2)
  1. HUMALOG MIX 75/25 [Suspect]
     Dosage: 12 IU, EACH EVENING
     Dates: start: 20120606
  2. HUMALOG MIX 75/25 [Suspect]
     Indication: GESTATIONAL DIABETES
     Dosage: 25 IU, EACH MORNING
     Dates: start: 20120606

REACTIONS (3)
  - MATERNAL EXPOSURE DURING PREGNANCY [None]
  - FEELING ABNORMAL [None]
  - ABORTION SPONTANEOUS [None]
